FAERS Safety Report 17003949 (Version 1)
Quarter: 2019Q4

REPORT INFORMATION
  Report Type: Report from Study
  Country: CA (occurrence: CA)
  Receive Date: 20191107
  Receipt Date: 20191107
  Transmission Date: 20200122
  Serious: Yes (Other)
  Sender: FDA-Public Use
  Company Number: CA-ORION CORPORATION ORION PHARMA-TREX2019-5264

PATIENT
  Age: 35 Year
  Sex: Male

DRUGS (8)
  1. COSENTYX [Suspect]
     Active Substance: SECUKINUMAB
     Route: 058
  2. ACITRETIN. [Concomitant]
     Active Substance: ACITRETIN
     Route: 065
  3. METHOTREXATE (TRADE NAME UNKNOWN) [Suspect]
     Active Substance: METHOTREXATE
     Indication: PRODUCT USED FOR UNKNOWN INDICATION
     Route: 048
  4. COSENTYX [Suspect]
     Active Substance: SECUKINUMAB
     Indication: PSORIASIS
     Route: 065
  5. ENBREL [Concomitant]
     Active Substance: ETANERCEPT
     Route: 065
  6. HYDROCORTISONE-MICONAZOLE [Concomitant]
     Route: 065
  7. COSENTYX [Suspect]
     Active Substance: SECUKINUMAB
     Route: 058
  8. BETAMETHASONE DIPROPIONATE-CALCIPOTRIOL MONOHYDRATE [Concomitant]
     Route: 065

REACTIONS (4)
  - Oesophageal candidiasis [Not Recovered/Not Resolved]
  - Abdominal discomfort [Not Recovered/Not Resolved]
  - Skin lesion [Not Recovered/Not Resolved]
  - Abdominal pain upper [Not Recovered/Not Resolved]
